FAERS Safety Report 7325305-6 (Version None)
Quarter: 2011Q1

REPORT INFORMATION
  Report Type: 
  Country: None (occurrence: None)
  Receive Date: 20110302
  Receipt Date: 20100909
  Transmission Date: 20110831
  Serious: Yes (Hospitalization, Other)
  Sender: FDA-Public Use
  Company Number: US-BAYER-201032082NA

PATIENT
  Sex: Female
  Weight: 95.238 kg

DRUGS (15)
  1. NAPROXEN [Concomitant]
  2. DIFLUNISAL [Concomitant]
  3. SEROQUEL [Concomitant]
  4. BENICAR [Concomitant]
  5. PROZAC [Concomitant]
  6. IBUPROFEN [Concomitant]
  7. MOBIC [Concomitant]
  8. WELLBUTRIN [Concomitant]
  9. SIMVASTATIN [Concomitant]
  10. NORCO [Concomitant]
     Indication: PAIN
  11. DROSPIRENONE AND ETHINYL ESTRADIOL [Suspect]
     Indication: PRODUCT USED FOR UNKNOWN INDICATION
     Dosage: UNK
     Dates: start: 20080701, end: 20090801
  12. YASMIN [Suspect]
     Indication: PRODUCT USED FOR UNKNOWN INDICATION
     Dosage: UNK
     Dates: start: 20010901, end: 20080601
  13. ALLEGRA [Concomitant]
  14. AMBIEN [Concomitant]
  15. ZOCOR [Concomitant]

REACTIONS (10)
  - CHOLECYSTITIS [None]
  - JOINT SWELLING [None]
  - CHOLELITHIASIS [None]
  - DEEP VEIN THROMBOSIS [None]
  - DYSPNOEA EXERTIONAL [None]
  - ABDOMINAL PAIN UPPER [None]
  - PULMONARY EMBOLISM [None]
  - PANCREATITIS [None]
  - NAUSEA [None]
  - BILIARY COLIC [None]
